FAERS Safety Report 15200150 (Version 4)
Quarter: 2024Q4

REPORT INFORMATION
  Report Type: Spontaneous
  Country: DE (occurrence: DE)
  Receive Date: 20180726
  Receipt Date: 20241010
  Transmission Date: 20250115
  Serious: Yes (Disabling)
  Sender: TEVA
  Company Number: DE-DCGMA-18177881

PATIENT
  Age: 16 Year
  Sex: Female
  Weight: 65 kg

DRUGS (7)
  1. FLUOXETINE [Suspect]
     Active Substance: FLUOXETINE HYDROCHLORIDE
     Indication: Tension
     Dosage: 20 MG, QD
     Route: 048
     Dates: start: 20170901, end: 20170912
  2. PROMETHAZINE HYDROCHLORIDE [Suspect]
     Active Substance: PROMETHAZINE HYDROCHLORIDE
     Indication: Tension
     Dosage: 75 MG MILLGRAM(S) EVERY DAYS
     Route: 048
     Dates: start: 20171117, end: 20171128
  3. MIRTAZAPINE [Suspect]
     Active Substance: MIRTAZAPINE
     Indication: Tension
     Dosage: 15 MG MILLGRAM(S) EVERY DAYS
     Route: 048
     Dates: start: 20171023, end: 20180118
  4. MIRTAZAPINE [Suspect]
     Active Substance: MIRTAZAPINE
     Indication: Tension
     Dosage: 7.5 MG
     Route: 065
  5. PIPAMPERONE HYDROCHLORIDE [Suspect]
     Active Substance: PIPAMPERONE HYDROCHLORIDE
     Indication: Tension
     Dosage: 40 MG, QD
     Route: 048
     Dates: start: 20171016, end: 20171023
  6. CITALOPRAM [Suspect]
     Active Substance: CITALOPRAM
     Indication: Tension
     Dosage: 20 MG, QMO
     Route: 048
     Dates: start: 20170917, end: 20180118
  7. CITALOPRAM [Suspect]
     Active Substance: CITALOPRAM
     Indication: Tension
     Dosage: 10 MG, QD
     Route: 065

REACTIONS (1)
  - Thyroiditis [Unknown]

NARRATIVE: CASE EVENT DATE: 20180129
